FAERS Safety Report 19783948 (Version 1)
Quarter: 2021Q3

REPORT INFORMATION
  Report Type: Spontaneous
  Country: US (occurrence: US)
  Receive Date: 20210903
  Receipt Date: 20210903
  Transmission Date: 20211014
  Serious: No
  Sender: FDA-Public Use
  Company Number: US-BECTON DICKINSON-US-BD-21-000029

PATIENT
  Age: 67 Year
  Sex: Male

DRUGS (1)
  1. CHLORAPREP [Suspect]
     Active Substance: CHLORHEXIDINE GLUCONATE\ISOPROPYL ALCOHOL
     Indication: INFECTION PROPHYLAXIS
     Dosage: 1.5 MILLILITER
     Route: 061
     Dates: start: 20201230, end: 20201230

REACTIONS (2)
  - Scratch [Recovered/Resolved]
  - Product package associated injury [Unknown]

NARRATIVE: CASE EVENT DATE: 20201230
